FAERS Safety Report 7363378-5 (Version None)
Quarter: 2011Q1

REPORT INFORMATION
  Report Type: 
  Country: None (occurrence: None)
  Receive Date: 20110321
  Receipt Date: 20110306
  Transmission Date: 20110831
  Serious: Yes (Hospitalization)
  Sender: FDA-Public Use
  Company Number: PHHY2011DE14877

PATIENT
  Sex: Male
  Weight: 115 kg

DRUGS (8)
  1. METFORMIN [Concomitant]
     Dosage: 1 DF, QD
     Route: 048
     Dates: start: 19980116
  2. HYDROCHLOROTHIAZIDE [Suspect]
     Dosage: 1 DF, QD
     Route: 048
     Dates: start: 20090323
  3. SIMVAGAMMA 40 [Concomitant]
     Dosage: 1 DF, QD
     Route: 048
     Dates: start: 20081216
  4. LANTUS [Concomitant]
     Indication: DIABETES MELLITUS
     Dosage: 30 IU, QD
     Route: 058
     Dates: start: 20031221
  5. GLIMEPIRIDE [Concomitant]
     Indication: DIABETES MELLITUS
     Dosage: 3 MG, QD
     Route: 048
     Dates: start: 20071126
  6. ALLOPURINOL [Concomitant]
     Dosage: 1 DF, QD
     Route: 048
     Dates: start: 19970626
  7. AMLODIPINE [Concomitant]
     Dosage: 1 DF, QD
     Route: 048
     Dates: start: 20060413
  8. ALISKIREN [Suspect]
     Indication: HYPERTENSION
     Dosage: 1 DF, QD (300 MG)
     Route: 048
     Dates: start: 20081216

REACTIONS (2)
  - GASTRIC ULCER HAEMORRHAGE [None]
  - IRON DEFICIENCY ANAEMIA [None]
